FAERS Safety Report 7486537-X (Version None)
Quarter: 2011Q2

REPORT INFORMATION
  Report Type: 
  Country: None (occurrence: None)
  Receive Date: 20110516
  Receipt Date: 20110516
  Transmission Date: 20111010
  Serious: No
  Sender: FDA-Public Use
  Company Number: None

PATIENT
  Age: 34 Year
  Sex: Male
  Weight: 81.6475 kg

DRUGS (1)
  1. HALDOL [Suspect]
     Dosage: 5MG TID IM
     Route: 030
     Dates: start: 20110127

REACTIONS (1)
  - MUSCULOSKELETAL STIFFNESS [None]
